FAERS Safety Report 8439549 (Version 2)
Quarter: 2013Q2

REPORT INFORMATION
  Report Type: Spontaneous
  Country: US (occurrence: None)
  Receive Date: 20120104
  Receipt Date: 20120508
  Transmission Date: 20140414
  Serious: Yes (Other)
  Sender: FDA-Public Use
  Company Number: 2011HGS-002874

PATIENT
  Age: 46 Year
  Sex: Female
  Weight: 128.82 kg

DRUGS (16)
  1. BENLYSTA [Suspect]
     Indication: SYSTEMIC LUPUS ERYTHEMATOSUS
     Route: 041
     Dates: start: 20111102
  2. CELLCEPT [Concomitant]
  3. ADVAIR (FLUTICASONE PROPIONATE W/SALMETEROL) [Concomitant]
  4. PERCOCET (TYLOX /00446701/) (PARACETAMOL, OXYCODONE HYDROCHLORIDE, OXYCODONE TEREPHTHALATE)) [Concomitant]
  5. PRISTIQ (DESVENLAFAXINE HYDROCHLORIDE)  (DESVENLAFAXINE HYDROCHLORIDE) [Concomitant]
  6. ZANAFLEX (TIZANIDINE HYDROCHLORIDE)  (TIZANIDINE HYDROCHLORIDE) [Concomitant]
  7. PRILOSEC [Concomitant]
  8. STOOL SOFTENER (DOCUSATE SODIUM) (DOCUSATE SODIUM) [Concomitant]
  9. TOPAMAX [Concomitant]
  10. COLCRYS (COLCHICINE) [Concomitant]
  11. XANAX [Concomitant]
  12. HYDROCHLOROTHIAZIDE (HYDROCHLOROTHIAZIDE) [Concomitant]
  13. DITROPAN [Concomitant]
  14. PHENERGAN [Concomitant]
  15. LIDODERM [Concomitant]
  16. COUMADIN [Concomitant]

REACTIONS (3)
  - COUGH [None]
  - DIARRHOEA [None]
  - DYSPNOEA [None]
